FAERS Safety Report 17556372 (Version 2)
Quarter: 2020Q2

REPORT INFORMATION
  Report Type: Spontaneous
  Country: US (occurrence: US)
  Receive Date: 20200318
  Receipt Date: 20200617
  Transmission Date: 20200713
  Serious: Yes (Other)
  Sender: FDA-Public Use
  Company Number: US-ASTRAZENECA-2020SE36091

PATIENT
  Age: 742 Month
  Sex: Female

DRUGS (47)
  1. BENZONATATE. [Concomitant]
     Active Substance: BENZONATATE
     Dates: start: 20161213
  2. INDAPAMIDE. [Concomitant]
     Active Substance: INDAPAMIDE
     Dates: start: 20140421
  3. CYMBALTA [Concomitant]
     Active Substance: DULOXETINE HYDROCHLORIDE
  4. LISINOPRIL. [Concomitant]
     Active Substance: LISINOPRIL
  5. NORTRIPTYLINE [Concomitant]
     Active Substance: NORTRIPTYLINE
     Dates: start: 20150401
  6. METFORMIN [Concomitant]
     Active Substance: METFORMIN HYDROCHLORIDE
     Dates: start: 20110207
  7. PRESEVISION [Concomitant]
     Indication: EYE DISORDER
     Dates: start: 2005
  8. VITAMIN D [Concomitant]
     Active Substance: VITAMIN D NOS
     Indication: VITAMIN D DEFICIENCY
     Dates: start: 2010
  9. PEPCID [Concomitant]
     Active Substance: FAMOTIDINE
     Dates: start: 2019
  10. BUSPIRONE [Concomitant]
     Active Substance: BUSPIRONE HYDROCHLORIDE
  11. SYNTHROID [Concomitant]
     Active Substance: LEVOTHYROXINE SODIUM
  12. DULOXETINE. [Concomitant]
     Active Substance: DULOXETINE
     Dates: start: 20140624
  13. TRIAMCINOLONE [Concomitant]
     Active Substance: TRIAMCINOLONE
     Dates: start: 20140821
  14. BENAZEPRIL [Concomitant]
     Active Substance: BENAZEPRIL HYDROCHLORIDE
     Dates: start: 20150302
  15. BYSTOLIC [Concomitant]
     Active Substance: NEBIVOLOL HYDROCHLORIDE
     Dates: start: 20150302
  16. LOVASTATIN. [Concomitant]
     Active Substance: LOVASTATIN
     Dates: start: 20111107
  17. JANUVIA [Concomitant]
     Active Substance: SITAGLIPTIN PHOSPHATE
  18. PREVACID [Suspect]
     Active Substance: LANSOPRAZOLE
     Indication: GASTROOESOPHAGEAL REFLUX DISEASE
     Route: 065
     Dates: start: 2001
  19. FERROUS SULFATE. [Concomitant]
     Active Substance: FERROUS SULFATE
  20. CETIRIZINE [Concomitant]
     Active Substance: CETIRIZINE HYDROCHLORIDE
  21. KEFLEX [Concomitant]
     Active Substance: CEPHALEXIN
  22. DOXYCYCLINE. [Concomitant]
     Active Substance: DOXYCYCLINE
     Dates: start: 20170304
  23. ZOLPIDEM [Concomitant]
     Active Substance: ZOLPIDEM TARTRATE
     Dates: start: 20120614
  24. NITROGLYCERINE [Concomitant]
     Active Substance: NITROGLYCERIN
  25. NEXIUM [Suspect]
     Active Substance: ESOMEPRAZOLE MAGNESIUM
     Indication: GASTROOESOPHAGEAL REFLUX DISEASE
     Route: 048
     Dates: start: 2003, end: 2013
  26. NEXIUM [Suspect]
     Active Substance: ESOMEPRAZOLE MAGNESIUM
     Indication: GASTROOESOPHAGEAL REFLUX DISEASE
     Route: 048
     Dates: start: 20110721
  27. PROTONIX [Suspect]
     Active Substance: PANTOPRAZOLE SODIUM
     Indication: GASTROOESOPHAGEAL REFLUX DISEASE
     Route: 065
     Dates: start: 2001
  28. AMPHETAMINE [Concomitant]
     Active Substance: AMPHETAMINE
     Dates: start: 20131009
  29. NEXIUM [Suspect]
     Active Substance: ESOMEPRAZOLE MAGNESIUM
     Indication: GASTROOESOPHAGEAL REFLUX DISEASE
     Route: 048
     Dates: start: 2013, end: 2015
  30. NEXIUM [Suspect]
     Active Substance: ESOMEPRAZOLE MAGNESIUM
     Indication: GASTROOESOPHAGEAL REFLUX DISEASE
     Dosage: GENERIC
     Route: 048
     Dates: start: 2015, end: 2017
  31. ASPIRIN. [Concomitant]
     Active Substance: ASPIRIN
     Indication: CARDIAC DISORDER
     Dates: start: 2018
  32. VITAMIN B12 [Concomitant]
     Active Substance: CYANOCOBALAMIN
  33. CALCITRIOL. [Concomitant]
     Active Substance: CALCITRIOL
  34. VITAMIN D3 [Concomitant]
     Active Substance: CHOLECALCIFEROL
  35. METOPROLOL. [Concomitant]
     Active Substance: METOPROLOL
  36. MIRALAX [Concomitant]
     Active Substance: POLYETHYLENE GLYCOL 3350
  37. AVASTIN [Concomitant]
     Active Substance: BEVACIZUMAB
  38. FLUTICASONE. [Concomitant]
     Active Substance: FLUTICASONE
  39. TUMS [Concomitant]
     Active Substance: CALCIUM CARBONATE
  40. ONDANSETRON [Concomitant]
     Active Substance: ONDANSETRON
     Dates: start: 20170502
  41. CLOBETASOL [Concomitant]
     Active Substance: CLOBETASOL
     Dates: start: 20141121
  42. NEXIUM [Suspect]
     Active Substance: ESOMEPRAZOLE MAGNESIUM
     Indication: GASTROOESOPHAGEAL REFLUX DISEASE
     Route: 048
     Dates: start: 2001, end: 2018
  43. PRILOSEC [Suspect]
     Active Substance: OMEPRAZOLE MAGNESIUM
     Indication: GASTROOESOPHAGEAL REFLUX DISEASE
     Route: 048
     Dates: start: 1999
  44. TYLENOL [Concomitant]
     Active Substance: ACETAMINOPHEN
     Indication: ARTHRITIS
     Dates: start: 2000
  45. ISOSORBIDE. [Concomitant]
     Active Substance: ISOSORBIDE
  46. PREDNISONE. [Concomitant]
     Active Substance: PREDNISONE
     Dates: start: 20170304
  47. MICONAZOLE. [Concomitant]
     Active Substance: MICONAZOLE

REACTIONS (2)
  - Hyperparathyroidism secondary [Unknown]
  - Chronic kidney disease [Not Recovered/Not Resolved]

NARRATIVE: CASE EVENT DATE: 200908
